FAERS Safety Report 6587395-8 (Version None)
Quarter: 2010Q1

REPORT INFORMATION
  Report Type: 
  Country: None (occurrence: None)
  Receive Date: 20100217
  Receipt Date: 20090522
  Transmission Date: 20100710
  Serious: No
  Sender: FDA-Public Use
  Company Number: US-ALLERGAN-0907282US

PATIENT

DRUGS (1)
  1. BOTOX [Suspect]
     Indication: TORTICOLLIS
     Dosage: UNK, SINGLE
     Route: 030
     Dates: start: 20090226, end: 20090226

REACTIONS (1)
  - THERAPEUTIC RESPONSE DECREASED [None]
